FAERS Safety Report 6128978-9 (Version None)
Quarter: 2009Q1

REPORT INFORMATION
  Report Type: 
  Country: None (occurrence: None)
  Receive Date: 20090324
  Receipt Date: 20090318
  Transmission Date: 20090719
  Serious: Yes (Death, Hospitalization, Other)
  Sender: FDA-Public Use
  Company Number: PHHY2009BR10096

PATIENT
  Age: 81 Year
  Sex: Male

DRUGS (7)
  1. EXELON [Suspect]
     Indication: DEMENTIA ALZHEIMER'S TYPE
     Dosage: 9 MG/5CM^2, 1 PATCH/24 HOURS
     Route: 062
     Dates: start: 20080601
  2. EXELON [Suspect]
     Dosage: 18 MG/10CM^2, 1 PATCH/DAY
     Route: 062
  3. MELLARIL [Suspect]
     Indication: HALLUCINATION
     Dosage: 50 MG/DAY
     Route: 048
     Dates: start: 20080501
  4. MELLARIL [Suspect]
     Dosage: 25 MG/DAY
     Route: 048
     Dates: end: 20081201
  5. EBIXA [Concomitant]
     Indication: DEMENTIA ALZHEIMER'S TYPE
     Dosage: 2 DF, UNK
     Route: 048
     Dates: start: 20081001, end: 20081201
  6. RIVOTRIL [Concomitant]
     Indication: DEPRESSION
     Dosage: 14 DROPS DAILY
     Route: 048
     Dates: start: 20050101, end: 20081201
  7. TRAZODONE HCL [Concomitant]
     Indication: DEPRESSION
     Dosage: UNK
     Route: 048
     Dates: end: 20081201

REACTIONS (15)
  - AGGRESSION [None]
  - ASTHENIA [None]
  - BRONCHOPNEUMONIA [None]
  - CONDITION AGGRAVATED [None]
  - DELIRIUM [None]
  - DEMENTIA ALZHEIMER'S TYPE [None]
  - DEPRESSION [None]
  - DYSPHAGIA [None]
  - EATING DISORDER [None]
  - GAIT DISTURBANCE [None]
  - GASTRIC ULCER [None]
  - GASTRIC ULCER HAEMORRHAGE [None]
  - INFECTION [None]
  - PYREXIA [None]
  - RESPIRATORY FAILURE [None]
